FAERS Safety Report 7572793-6 (Version None)
Quarter: 2011Q2

REPORT INFORMATION
  Report Type: 
  Country: None (occurrence: None)
  Receive Date: 20110627
  Receipt Date: 20110622
  Transmission Date: 20111010
  Serious: No
  Sender: FDA-Public Use
  Company Number: US-PFIZER INC-2011139244

PATIENT
  Age: 78 Year
  Sex: Male

DRUGS (8)
  1. RAMIPRIL [Concomitant]
     Indication: CARDIAC DISORDER
     Dosage: 10 MG, DAILY
  2. DIAZEPAM [Concomitant]
     Indication: SLEEP DISORDER
     Dosage: 10 MG, DAILY
  3. ACETYLSALICYLIC ACID [Concomitant]
     Dosage: 81 MG, DAILY
  4. DETROL LA [Suspect]
     Dosage: 4 MG, DAILY
     Route: 048
  5. LIPITOR [Concomitant]
     Dosage: 10 MG, DAILY
     Route: 048
  6. VITAMIN TAB [Concomitant]
     Indication: ELDERLY
     Dosage: UNK
  7. CALCIUM CARBONATE [Concomitant]
     Indication: GASTRIC DISORDER
     Dosage: UNK
  8. SERTRALINE HYDROCHLORIDE [Concomitant]
     Dosage: 100 MG, DAILY

REACTIONS (1)
  - CONSTIPATION [None]
